FAERS Safety Report 5485679-8 (Version None)
Quarter: 2007Q4

REPORT INFORMATION
  Report Type: 
  Country: None (occurrence: None)
  Receive Date: 20071015
  Receipt Date: 20071005
  Transmission Date: 20080405
  Serious: Yes (Hospitalization)
  Sender: FDA-Public Use
  Company Number: US-ROCHE-523446

PATIENT
  Sex: Female

DRUGS (2)
  1. PEGASYS [Suspect]
     Indication: HEPATITIS C
     Dosage: ^ONE COURSE^ OF TREATMENT SO FAR, WITH SECOND TREATMENT PRESCRIBED BUT NOT INTITIATED.
     Route: 065
  2. RIBAVIRIN [Suspect]
     Indication: HEPATITIS C
     Dosage: ^ONE COURSE^ OF THERAPY SO FAR, WITH SECOND TREATMENT PRESCRIBED BUT NOT INITIATED.
     Route: 065

REACTIONS (1)
  - VARICES OESOPHAGEAL [None]
